FAERS Safety Report 5989188-9 (Version None)
Quarter: 2008Q4

REPORT INFORMATION
  Report Type: 
  Country: None (occurrence: None)
  Receive Date: 20081210
  Receipt Date: 20081204
  Transmission Date: 20090506
  Serious: Yes (Hospitalization)
  Sender: FDA-Public Use
  Company Number: JP-MERCK-0812USA01895

PATIENT
  Age: 60 Year
  Sex: Male

DRUGS (3)
  1. TIMOPTIC [Suspect]
     Indication: OCULAR HYPERTENSION
     Route: 047
  2. MYDRIN-P [Suspect]
     Indication: MYDRIASIS
     Route: 047
  3. BETAMETHASONE [Suspect]
     Indication: INFLAMMATION
     Route: 047

REACTIONS (1)
  - STEVENS-JOHNSON SYNDROME [None]
